FAERS Safety Report 17148940 (Version 1)
Quarter: 2019Q4

REPORT INFORMATION
  Report Type: Spontaneous
  Country: NL (occurrence: NL)
  Receive Date: 20191213
  Receipt Date: 20191213
  Transmission Date: 20200122
  Serious: Yes (Life-Threatening, Hospitalization)
  Sender: FDA-Public Use
  Company Number: NL-TEVA-2019-NL-1150647

PATIENT
  Age: 56 Year
  Sex: Female
  Weight: 70 kg

DRUGS (6)
  1. QUETIAPINE FILMOMHULDE TABLET, 200 MG (MILLIGRAM) [Suspect]
     Active Substance: QUETIAPINE
     Indication: DEPRESSION
     Dosage: 250 MG
     Dates: start: 2016
  2. TRACYDAL (TRANYLCYPROMINE) TABLET, 20 MG (MILLIGRAM) [Suspect]
     Active Substance: TRANYLCYPROMINE SULFATE
     Indication: DEPRESSION
     Dosage: 60 MG
     Dates: start: 20190926, end: 20191104
  3. VIT D SUPPLETIE [Concomitant]
  4. QUETIAPINE TABLET MET GEREGULEERDE AFGIFTE, 50 MG (MILLIGRAM) [Suspect]
     Active Substance: QUETIAPINE
     Indication: DEPRESSION
     Dosage: 100 MG
     Dates: start: 2016
  5. PRIADEL (LITHIUM CARBONATE) [Suspect]
     Active Substance: LITHIUM CARBONATE
     Indication: DEPRESSION
     Dosage: 800 MG
     Dates: start: 2018
  6. LEVOTHYROXINE. [Concomitant]
     Active Substance: LEVOTHYROXINE
     Dosage: 1 DD 100 MCG

REACTIONS (2)
  - Confusional state [Recovered/Resolved]
  - Aphasia [Recovered/Resolved]

NARRATIVE: CASE EVENT DATE: 20190927
